FAERS Safety Report 17516073 (Version 2)
Quarter: 2020Q1

REPORT INFORMATION
  Report Type: Report from Study
  Country: MX (occurrence: MX)
  Receive Date: 20200309
  Receipt Date: 20200326
  Transmission Date: 20200409
  Serious: Yes (Other)
  Sender: FDA-Public Use
  Company Number: MX-SA-2016SA181480

PATIENT
  Age: 66 Year
  Sex: Female
  Weight: 75 kg

DRUGS (6)
  1. ALEMTUZUMAB [Suspect]
     Active Substance: ALEMTUZUMAB
     Indication: MULTIPLE SCLEROSIS
     Dosage: UNK UNK,QD
     Route: 042
     Dates: start: 20160224, end: 20160226
  2. LEVETIRACETAM. [Concomitant]
     Active Substance: LEVETIRACETAM
     Dosage: 2 DF, HS
     Route: 065
  3. ALEMTUZUMAB [Suspect]
     Active Substance: ALEMTUZUMAB
     Dosage: UNK UNK,QD
     Route: 042
     Dates: start: 20150324, end: 20150328
  4. SERTRALINE [Concomitant]
     Active Substance: SERTRALINE HYDROCHLORIDE
     Indication: HYPOTENSION
     Dosage: 50 MG, QD
     Route: 048
  5. GLIBENCLAMIDE [Concomitant]
     Active Substance: GLYBURIDE
     Indication: DIABETES MELLITUS
     Dosage: 1 IN THE MORNING AND 1 IN THE NIGHT
     Route: 048
  6. ALPRAZOLAM. [Concomitant]
     Active Substance: ALPRAZOLAM
     Indication: INSOMNIA
     Dosage: 1 DF, QD
     Route: 048

REACTIONS (28)
  - Red cell distribution width increased [Unknown]
  - Monocyte count decreased [Unknown]
  - Haematuria [Unknown]
  - Urine leukocyte esterase positive [Unknown]
  - Urinary sediment present [Unknown]
  - Red blood cell count increased [Unknown]
  - Nitrite urine present [Unknown]
  - Blood creatinine decreased [Unknown]
  - Crystal urine present [Unknown]
  - Thyroxine decreased [Unknown]
  - Tri-iodothyronine decreased [Unknown]
  - Eosinophil count decreased [Unknown]
  - White blood cells urine positive [Unknown]
  - Influenza [Recovered/Resolved]
  - Mean cell haemoglobin concentration decreased [Unknown]
  - Muscular weakness [Unknown]
  - Malaise [Unknown]
  - Urinary tract infection [Recovering/Resolving]
  - Bacterial test [Unknown]
  - Herpes virus infection [Recovered/Resolved]
  - Haematocrit increased [Unknown]
  - Haemoglobin increased [Unknown]
  - Blood calcitonin decreased [Unknown]
  - Haemoglobin urine present [Unknown]
  - Asthenia [Recovered/Resolved]
  - Urine abnormality [Unknown]
  - Asthenia [Unknown]
  - Cough [Recovered/Resolved]

NARRATIVE: CASE EVENT DATE: 20160818
